FAERS Safety Report 21507894 (Version 1)
Quarter: 2022Q4

REPORT INFORMATION
  Report Type: Spontaneous
  Country: SE (occurrence: SE)
  Receive Date: 20221026
  Receipt Date: 20221026
  Transmission Date: 20230113
  Serious: Yes (Other)
  Sender: FDA-Public Use
  Company Number: None

PATIENT
  Age: 17 Year
  Sex: Female

DRUGS (1)
  1. ISOTRETINOIN [Suspect]
     Active Substance: ISOTRETINOIN
     Indication: Acne
     Dosage: UNIT DOSE : 90 MG ,DURATION : 71 DAYS ,  FREQUENCY TIME : 1 DAY
     Dates: start: 20220707, end: 20220916

REACTIONS (1)
  - Papilloedema [Unknown]

NARRATIVE: CASE EVENT DATE: 20220912
